FAERS Safety Report 6429606-5 (Version None)
Quarter: 2009Q4

REPORT INFORMATION
  Report Type: 
  Country: None (occurrence: None)
  Receive Date: 20091103
  Receipt Date: 20091020
  Transmission Date: 20100525
  Serious: Yes (Hospitalization)
  Sender: FDA-Public Use
  Company Number: APP200900646

PATIENT
  Age: 81 Year
  Sex: Male
  Weight: 99 kg

DRUGS (9)
  1. HEPARIN SODIUM INJECTION [Suspect]
     Indication: ANTICOAGULANT THERAPY
     Dosage: 4000 USP UNITS, ONCE, HEMODIALYSIS
     Route: 010
     Dates: start: 20091007, end: 20091007
  2. HEPARIN SODIUM INJECTION [Suspect]
  3. HEPARIN SODIUM INJECTION [Suspect]
  4. HEPARIN SODIUM INJECTION [Suspect]
  5. OPTIFLUX DIALYSIS FILTER [Suspect]
     Indication: HAEMODIALYSIS
     Dates: start: 20090824, end: 20091007
  6. SOLU-MEDROL [Concomitant]
  7. CEFTRIAXONE [Concomitant]
  8. SODIUM CHLORIDE [Concomitant]
  9. ZITHROMAX [Concomitant]

REACTIONS (1)
  - RESPIRATORY DISTRESS [None]
